FAERS Safety Report 21107067 (Version 1)
Quarter: 2022Q3

REPORT INFORMATION
  Report Type: Spontaneous
  Country: US (occurrence: None)
  Receive Date: 20220720
  Receipt Date: 20220720
  Transmission Date: 20221027
  Serious: Yes (Death)
  Sender: FDA-Public Use
  Company Number: None

PATIENT
  Age: 78 Year
  Sex: Male
  Weight: 76.95 kg

DRUGS (15)
  1. REVLIMID [Suspect]
     Active Substance: LENALIDOMIDE
     Indication: Plasma cell myeloma
     Dosage: FREQUENCY : DAILY;?
     Route: 048
     Dates: start: 20210528, end: 20220525
  2. ASPIRIN [Concomitant]
     Active Substance: ASPIRIN
  3. cholecalciferol (vitamin D3) 50 mcg (2,000 unit) [Concomitant]
  4. COLACE [Concomitant]
     Active Substance: DOCUSATE SODIUM
  5. DULOXETINE [Concomitant]
     Active Substance: DULOXETINE
  6. ELIQUIS [Concomitant]
     Active Substance: APIXABAN
  7. FINASTERIDE [Concomitant]
     Active Substance: FINASTERIDE
  8. FUROSEMIDE [Concomitant]
     Active Substance: FUROSEMIDE
  9. GABAPENTIN [Concomitant]
     Active Substance: GABAPENTIN
  10. LOSARTAN [Concomitant]
     Active Substance: LOSARTAN
  11. magnesium 400 mg [Concomitant]
  12. MS CONTIN [Concomitant]
     Active Substance: MORPHINE SULFATE
  13. Probiotic 5 billion cell sprinkle [Concomitant]
  14. Symbicort 80 mcg-4.5 mcg/ [Concomitant]
  15. Tylenol Arthritis Pain 650 mg [Concomitant]

REACTIONS (1)
  - Death [None]
